FAERS Safety Report 17400405 (Version 1)
Quarter: 2020Q1

REPORT INFORMATION
  Report Type: Spontaneous
  Country: US (occurrence: US)
  Receive Date: 20200211
  Receipt Date: 20200211
  Transmission Date: 20200409
  Serious: No
  Sender: FDA-Public Use
  Company Number: US-LUPIN PHARMACEUTICALS INC.-2020-00340

PATIENT
  Age: 80 Year
  Sex: Female
  Weight: 79.38 kg

DRUGS (2)
  1. ZOLPIDEM TARTRATE EXTENDED RELEASE TABLET USP, 12.5 MG [Suspect]
     Active Substance: ZOLPIDEM TARTRATE
     Indication: INSOMNIA
     Dosage: 12.5 MILLIGRAM, QD
     Route: 048
  2. ZOLPIDEM TARTRATE EXTENDED RELEASE TABLET USP, 12.5 MG [Suspect]
     Active Substance: ZOLPIDEM TARTRATE
     Dosage: 12.5 MILLIGRAM, QD (NEW REFILL)
     Route: 048
     Dates: start: 20191230

REACTIONS (3)
  - Product quality issue [Unknown]
  - Drug ineffective [Unknown]
  - Stress [Unknown]

NARRATIVE: CASE EVENT DATE: 20191230
